FAERS Safety Report 11584398 (Version 1)
Quarter: 2015Q4

REPORT INFORMATION
  Report Type: Spontaneous
  Country: US (occurrence: US)
  Receive Date: 20151001
  Receipt Date: 20151001
  Transmission Date: 20160304
  Serious: No
  Sender: FDA-Public Use
  Company Number: US-BIOGENIDEC-2015BI131302

PATIENT
  Age: 60 Year
  Sex: Female
  Weight: 81 kg

DRUGS (28)
  1. CALCIUM CARBONATE. [Concomitant]
     Active Substance: CALCIUM CARBONATE
  2. RECLAST [Concomitant]
     Active Substance: ZOLEDRONIC ACID
  3. AMPYRA [Concomitant]
     Active Substance: DALFAMPRIDINE
     Indication: GAIT DISTURBANCE
     Route: 048
     Dates: start: 20150502
  4. MYRBETRIQ [Concomitant]
     Active Substance: MIRABEGRON
     Dates: start: 201501
  5. VITAMIN C [Concomitant]
     Active Substance: ASCORBIC ACID
  6. ASPIRIN. [Concomitant]
     Active Substance: ASPIRIN
  7. ONGLYZA [Concomitant]
     Active Substance: SAXAGLIPTIN HYDROCHLORIDE
  8. VITAMIN D [Concomitant]
     Active Substance: CHOLECALCIFEROL
  9. PREMARIN [Concomitant]
     Active Substance: ESTROGENS, CONJUGATED
  10. ESTRADIOL. [Concomitant]
     Active Substance: ESTRADIOL
  11. PROBIOTIC FORMULA 1B [Concomitant]
  12. ALEVE [Concomitant]
     Active Substance: NAPROXEN SODIUM
  13. VITAMIN B12 [Concomitant]
     Active Substance: CYANOCOBALAMIN
  14. LOSARTAN. [Concomitant]
     Active Substance: LOSARTAN
  15. CALCIUM [Concomitant]
     Active Substance: CALCIUM
  16. CETRIZINE [Concomitant]
     Active Substance: CETIRIZINE HYDROCHLORIDE
  17. VITAMIN E [Concomitant]
     Active Substance: .ALPHA.-TOCOPHEROL
  18. AVONEX [Suspect]
     Active Substance: INTERFERON BETA-1A
     Indication: PRODUCT USED FOR UNKNOWN INDICATION
  19. NITROFURANTOIN. [Concomitant]
     Active Substance: NITROFURANTOIN
     Dates: start: 2010
  20. CRANBERRY EXTRACT [Concomitant]
     Active Substance: CRANBERRY JUICE
  21. CRANBERRY EXTRACT [Concomitant]
     Active Substance: CRANBERRY JUICE
  22. DUCODYL [Concomitant]
  23. METFORMIN [Concomitant]
     Active Substance: METFORMIN HYDROCHLORIDE
  24. AVANDIA [Concomitant]
     Active Substance: ROSIGLITAZONE MALEATE
  25. MAGNESIUM CITRATE. [Concomitant]
     Active Substance: MAGNESIUM CITRATE
  26. LIPITOR [Concomitant]
     Active Substance: ATORVASTATIN CALCIUM
  27. FOLIC ACID. [Concomitant]
     Active Substance: FOLIC ACID
  28. CALCIUM MAGNESIUM ZINC [Concomitant]
     Active Substance: CALCIUM\MAGNESIUM\ZINC

REACTIONS (5)
  - Vertigo [Recovered/Resolved]
  - Mobility decreased [Recovered/Resolved]
  - Weight increased [Recovered/Resolved]
  - Nocturia [Recovered/Resolved]
  - Drug ineffective [Unknown]

NARRATIVE: CASE EVENT DATE: 20150502
